FAERS Safety Report 5288434-7 (Version None)
Quarter: 2007Q2

REPORT INFORMATION
  Report Type: 
  Country: None (occurrence: None)
  Receive Date: 20070405
  Receipt Date: 20070329
  Transmission Date: 20071010
  Serious: Yes (Life-Threatening)
  Sender: FDA-Public Use
  Company Number: IT-ELI_LILLY_AND_COMPANY-IT200704000018

PATIENT
  Age: 58 Year
  Sex: Male

DRUGS (4)
  1. HUMULIN CARTUCCE NPH [Suspect]
     Indication: DIABETES MELLITUS
     Dosage: 12 U, DAILY (1/D)
     Route: 058
     Dates: start: 20030317, end: 20070317
  2. TRIATEC [Concomitant]
     Dosage: 10 MG, UNK
  3. TOTALIP [Concomitant]
     Dosage: 20 MG, UNK
  4. METFORMIN HCL [Concomitant]
     Dosage: 500 MG, 3/D

REACTIONS (4)
  - FACE OEDEMA [None]
  - LIP OEDEMA [None]
  - PRURITUS GENERALISED [None]
  - TONGUE OEDEMA [None]
